FAERS Safety Report 16709113 (Version 2)
Quarter: 2019Q3

REPORT INFORMATION
  Report Type: Report from Study
  Country: GB (occurrence: GB)
  Receive Date: 20190816
  Receipt Date: 20190821
  Transmission Date: 20191004
  Serious: Yes (Hospitalization, Other)
  Sender: FDA-Public Use
  Company Number: GB-LEO PHARMA-323723

PATIENT
  Age: 75 Year
  Sex: Male
  Weight: 66 kg

DRUGS (1)
  1. DAIVOBET [Suspect]
     Active Substance: BETAMETHASONE DIPROPIONATE\CALCIPOTRIENE
     Indication: PSORIASIS
     Route: 061
     Dates: start: 20170403

REACTIONS (5)
  - Acute kidney injury [Recovered/Resolved]
  - Benign pancreatic neoplasm [Unknown]
  - Dehydration [Unknown]
  - Hypercalcaemia [Recovered/Resolved]
  - Prostate cancer [Recovering/Resolving]

NARRATIVE: CASE EVENT DATE: 20170420
